FAERS Safety Report 12569331 (Version 9)
Quarter: 2016Q4

REPORT INFORMATION
  Report Type: Spontaneous
  Country: BR (occurrence: BR)
  Receive Date: 20160719
  Receipt Date: 20161019
  Transmission Date: 20170207
  Serious: Yes (Hospitalization, Other)
  Sender: FDA-Public Use
  Company Number: BR-JNJFOC-20160627895

PATIENT
  Age: 59 Year
  Sex: Female
  Weight: 38 kg

DRUGS (1)
  1. SIMPONI [Suspect]
     Active Substance: GOLIMUMAB
     Indication: RHEUMATOID ARTHRITIS
     Route: 058
     Dates: start: 20160219

REACTIONS (7)
  - Femur fracture [Recovering/Resolving]
  - Fall [Recovering/Resolving]
  - Device malfunction [Unknown]
  - Drug dose omission [Unknown]
  - Pain [Unknown]
  - Rheumatic disorder [Unknown]
  - Dysphonia [Unknown]

NARRATIVE: CASE EVENT DATE: 2016
